FAERS Safety Report 8084089-7 (Version None)
Quarter: 2012Q1

REPORT INFORMATION
  Report Type: 
  Country: None (occurrence: None)
  Receive Date: 20120128
  Receipt Date: 20110128
  Transmission Date: 20120608
  Serious: Yes (Hospitalization, Other)
  Sender: FDA-Public Use
  Company Number: US-ABBOTT-11P-163-0701478-00

PATIENT
  Sex: Female
  Weight: 59 kg

DRUGS (11)
  1. MELOXICAM [Concomitant]
     Indication: ANKYLOSING SPONDYLITIS
     Route: 048
     Dates: start: 20100613, end: 20101130
  2. PREDNISOLONE [Concomitant]
     Indication: ANKYLOSING SPONDYLITIS
     Route: 061
     Dates: start: 20100613, end: 20100630
  3. HUMIRA [Suspect]
     Indication: ANKYLOSING SPONDYLITIS
     Route: 050
     Dates: start: 20100613, end: 20101217
  4. ANTIBIOTIC [Concomitant]
     Indication: SEPSIS
     Route: 042
     Dates: start: 20101227, end: 20101228
  5. ACETAMINOPHEN [Concomitant]
     Indication: ARTHRALGIA
     Route: 048
     Dates: start: 20100613
  6. POTASSIUM [Concomitant]
     Indication: BLOOD POTASSIUM DECREASED
     Route: 048
     Dates: start: 20101229, end: 20101229
  7. MAGNESIUM [Concomitant]
     Indication: BLOOD MAGNESIUM DECREASED
     Route: 042
     Dates: start: 20101228, end: 20101228
  8. ANTIBIOTIC [Concomitant]
     Indication: PRODUCT USED FOR UNKNOWN INDICATION
     Route: 048
     Dates: start: 20101229, end: 20110107
  9. CALCIUM [Concomitant]
     Indication: BLOOD CALCIUM DECREASED
     Route: 042
     Dates: start: 20101228, end: 20101228
  10. PREDNISOLONE [Concomitant]
     Indication: IRITIS
  11. GAVISCON [Concomitant]
     Indication: DYSPEPSIA
     Route: 048
     Dates: start: 20101024

REACTIONS (10)
  - BLOOD CALCIUM DECREASED [None]
  - ANAEMIA [None]
  - LOCALISED INFECTION [None]
  - BLOOD POTASSIUM DECREASED [None]
  - BLOOD MAGNESIUM DECREASED [None]
  - SEPSIS [None]
  - IRITIS [None]
  - DYSPEPSIA [None]
  - ARTHRALGIA [None]
  - VAGINAL HAEMORRHAGE [None]
